FAERS Safety Report 21967911 (Version 1)
Quarter: 2023Q1

REPORT INFORMATION
  Report Type: Spontaneous
  Country: US (occurrence: None)
  Receive Date: 20230207
  Receipt Date: 20230207
  Transmission Date: 20230418
  Serious: Yes (Life-Threatening, Hospitalization, Disabling)
  Sender: FDA-Public Use
  Company Number: None

PATIENT
  Age: 65 Year
  Sex: Male
  Weight: 90.72 kg

DRUGS (5)
  1. CEFEPIME [Suspect]
     Active Substance: CEFEPIME HYDROCHLORIDE
     Indication: Urinary tract infection
  2. CEFPODOXIME [Suspect]
     Active Substance: CEFPODOXIME
  3. CEFPODOXIME [Suspect]
     Active Substance: CEFPODOXIME
  4. CEFUROXIME AXETIL [Suspect]
     Active Substance: CEFUROXIME AXETIL
  5. FLOMAX [Suspect]
     Active Substance: TAMSULOSIN HYDROCHLORIDE

REACTIONS (10)
  - Pneumonia [None]
  - Ulcer haemorrhage [None]
  - Dysuria [None]
  - Dyspnoea [None]
  - Blood urine present [None]
  - Urine analysis abnormal [None]
  - Product prescribing issue [None]
  - Mucous stools [None]
  - Increased bronchial secretion [None]
  - Mucosal disorder [None]
